FAERS Safety Report 15386767 (Version 1)
Quarter: 2018Q3

REPORT INFORMATION
  Report Type: Spontaneous
  Country: US (occurrence: US)
  Receive Date: 20180914
  Receipt Date: 20180914
  Transmission Date: 20181010
  Serious: No
  Sender: FDA-Public Use
  Company Number: US-ARALEZ PHARMACEUTICALS R+D INC.-2018-ARA-002105

PATIENT
  Sex: Male

DRUGS (6)
  1. METOPROLOL SUCCINATE. [Suspect]
     Active Substance: METOPROLOL SUCCINATE
     Indication: PRODUCT USED FOR UNKNOWN INDICATION
     Dosage: 50 MG, QD
     Route: 065
     Dates: start: 201802
  2. HYDROXYZINE [Concomitant]
     Active Substance: HYDROXYZINE HYDROCHLORIDE
     Indication: SKIN DISORDER
  3. ALLOPURINOL. [Concomitant]
     Active Substance: ALLOPURINOL
  4. RANITIDINE. [Concomitant]
     Active Substance: RANITIDINE
  5. DICLOFENAC SODIUM. [Concomitant]
     Active Substance: DICLOFENAC SODIUM
  6. PREDNISONE. [Concomitant]
     Active Substance: PREDNISONE
     Indication: SKIN DISORDER

REACTIONS (3)
  - Pruritus [Unknown]
  - Urticaria [Unknown]
  - Product physical issue [Unknown]

NARRATIVE: CASE EVENT DATE: 2018
